FAERS Safety Report 8521533-2 (Version None)
Quarter: 2012Q3

REPORT INFORMATION
  Report Type: 
  Country: None (occurrence: None)
  Receive Date: 20120719
  Receipt Date: 20120712
  Transmission Date: 20120928
  Serious: Yes (Other)
  Sender: FDA-Public Use
  Company Number: PHEH2012US011514

PATIENT
  Sex: Female
  Weight: 56.8 kg

DRUGS (5)
  1. GILENYA [Suspect]
     Indication: MULTIPLE SCLEROSIS
     Dosage: 0.5 MG, QD
     Route: 048
     Dates: start: 20120321
  2. VITAMIN D [Concomitant]
     Indication: VITAMIN D DEFICIENCY
     Dosage: 2000 IU, QD
     Route: 048
  3. PRIMIDONE [Concomitant]
     Indication: TREMOR
     Dosage: 50 MG, TID
     Route: 048
     Dates: start: 20120111
  4. MULTI-VITAMINS [Concomitant]
     Indication: PROPHYLAXIS
     Route: 048
  5. AZITHROMYCIN [Concomitant]
     Indication: PAIN IN JAW
     Dosage: 250 MG, UNK
     Route: 048

REACTIONS (2)
  - PAIN IN JAW [None]
  - TRIGEMINAL NEURALGIA [None]
